FAERS Safety Report 12817125 (Version 1)
Quarter: 2016Q4

REPORT INFORMATION
  Report Type: Spontaneous
  Country: US (occurrence: US)
  Receive Date: 20161005
  Receipt Date: 20161005
  Transmission Date: 20170207
  Serious: No
  Sender: FDA-Public Use
  Company Number: None

PATIENT
  Age: 70 Year
  Sex: Female
  Weight: 67.5 kg

DRUGS (6)
  1. CALCIUM TABLET [Concomitant]
  2. FLUOXETINE [Concomitant]
     Active Substance: FLUOXETINE HYDROCHLORIDE
  3. FLAXSEED OIL CAPSULES [Concomitant]
  4. AZELASTINE HCL NASAL SOLUTION [Suspect]
     Active Substance: AZELASTINE HYDROCHLORIDE
     Indication: GASTROOESOPHAGEAL REFLUX DISEASE
     Dosage: ?          QUANTITY:4 SPRAY(S);OTHER ROUTE:NASAL SPRAY?
     Dates: start: 20161001, end: 20161003
  5. AZELASTINE HCL NASAL SOLUTION [Suspect]
     Active Substance: AZELASTINE HYDROCHLORIDE
     Indication: NASAL CONGESTION
     Dosage: ?          QUANTITY:4 SPRAY(S);OTHER ROUTE:NASAL SPRAY?
     Dates: start: 20161001, end: 20161003
  6. CLOPIDOGREL [Concomitant]
     Active Substance: CLOPIDOGREL BISULFATE

REACTIONS (8)
  - Discomfort [None]
  - Palpitations [None]
  - Fatigue [None]
  - Depression [None]
  - Dizziness [None]
  - Activities of daily living impaired [None]
  - Insomnia [None]
  - Feeling abnormal [None]

NARRATIVE: CASE EVENT DATE: 20161003
